FAERS Safety Report 22524536 (Version 1)
Quarter: 2023Q2

REPORT INFORMATION
  Report Type: Spontaneous
  Country: KR (occurrence: KR)
  Receive Date: 20230606
  Receipt Date: 20230606
  Transmission Date: 20230722
  Serious: Yes (Hospitalization)
  Sender: FDA-Public Use
  Company Number: KR-ORGANON-O2305KOR003105

PATIENT
  Age: 42 Year
  Sex: Female
  Weight: 82 kg

DRUGS (6)
  1. COZAAR [Suspect]
     Active Substance: LOSARTAN POTASSIUM
     Indication: Essential hypertension
     Dosage: UNK; FILM-COATED TABLETS
     Route: 048
     Dates: start: 20160403
  2. TRIAMCINOLONE ACETONIDE [Suspect]
     Active Substance: TRIAMCINOLONE ACETONIDE
     Indication: Vitreous disorder
     Dosage: 4 MILLIGRAM, QD; DOSAGE FORM:OPTHALMIC INJECTION
     Dates: start: 20160413, end: 20160413
  3. SODIUM HYALURONATE [Concomitant]
     Active Substance: HYALURONATE SODIUM
     Indication: Lacrimal disorder
     Dosage: UNK; OPHTHALMIC INJECTION
     Dates: start: 20160329
  4. SOLCOSERYL [BLOOD, CALF, DEPROT., LMW PORTION] [Concomitant]
     Indication: Lacrimal disorder
     Dosage: UNK;OPHTHALMIC GEL; DRUG NAME:SOLCOSERYL 120 CONCENTRATE SOLUTION
     Dates: start: 20160329, end: 20161215
  5. BRIMONIDINE TARTRATE [Concomitant]
     Active Substance: BRIMONIDINE TARTRATE
     Indication: Glaucoma
     Dosage: UNK; OPHTHALMIC INJECTION
     Dates: start: 20120207
  6. PRAVASTATIN SODIUM [Concomitant]
     Active Substance: PRAVASTATIN SODIUM
     Indication: Hyperlipidaemia
     Dosage: UNK; UNCOATED TABLET
     Route: 048
     Dates: start: 20150119

REACTIONS (1)
  - Cataract [Recovered/Resolved]

NARRATIVE: CASE EVENT DATE: 20160701
